FAERS Safety Report 20894252 (Version 1)
Quarter: 2022Q2

REPORT INFORMATION
  Report Type: Spontaneous
  Country: US (occurrence: US)
  Receive Date: 20220531
  Receipt Date: 20220531
  Transmission Date: 20220721
  Serious: No
  Sender: FDA-Public Use
  Company Number: US-CELGENE-USA-20220106266

PATIENT
  Age: 64 Year
  Sex: Female
  Weight: 86.46 kg

DRUGS (4)
  1. REVLIMID [Suspect]
     Active Substance: LENALIDOMIDE
     Indication: Plasma cell myeloma
     Dosage: FREQUENCY TEXT: NOT PROVIDED
     Route: 048
     Dates: start: 2008
  2. REVLIMID [Suspect]
     Active Substance: LENALIDOMIDE
     Dosage: 25 MILLIGRAM
     Route: 048
     Dates: start: 200910
  3. REVLIMID [Suspect]
     Active Substance: LENALIDOMIDE
     Dosage: 15 MILLIGRAM
     Route: 048
     Dates: start: 201608
  4. REVLIMID [Suspect]
     Active Substance: LENALIDOMIDE
     Dosage: FREQ:TAKE 1 CAPSULE DAILY FOR 21 DAYS, THEN 7 ?DAYS OFF.
     Route: 048
     Dates: start: 20220408, end: 20220507

REACTIONS (2)
  - Full blood count decreased [Not Recovered/Not Resolved]
  - Diarrhoea [Not Recovered/Not Resolved]
